FAERS Safety Report 5131089-2 (Version None)
Quarter: 2006Q3

REPORT INFORMATION
  Report Type: 
  Country: None (occurrence: None)
  Receive Date: 20060825
  Receipt Date: 20060130
  Transmission Date: 20061208
  Serious: Yes (Hospitalization, Other)
  Sender: FDA-Public Use
  Company Number: 2005153887

PATIENT
  Age: 58 Year
  Sex: Female
  Weight: 83.9154 kg

DRUGS (16)
  1. VFEND [Suspect]
     Indication: BRONCHOPULMONARY ASPERGILLOSIS
     Dosage: 400 MG (200 MG , 2 IN 1 D), ORAL
     Route: 048
     Dates: start: 20051027
  2. CLONIDINE [Suspect]
     Indication: HYPERTENSION
     Dosage: 0.2 MG (0.2 ,G. 1 IN 1 D), UNKNOWN
  3. HYDROCHLOROTHIAZIDE [Concomitant]
  4. ALBUTEROL [Concomitant]
  5. ADVAIR DISKUS 100/50 [Concomitant]
  6. FLONASE [Concomitant]
  7. MAGNESIUM (MAGNESIUM) [Concomitant]
  8. CORAL CALCIUM (CALCIUM , MINERALS NOS) [Concomitant]
  9. CYSTEINE (CYSTEINE) [Concomitant]
  10. CLARITIN [Concomitant]
  11. KYOLIC (GARLIC) [Concomitant]
  12. ALL OTHER THERAPEUTIC PRODUCTS (ALL OTHER THERAPEUTIC PRODUCTS) [Concomitant]
  13. MULTIVITAMIN [Concomitant]
  14. ANTHIHISTAMINES (ANTHIHISTAMINES) [Concomitant]
  15. PREDNISONE TAB [Concomitant]
  16. ALL OTHER THERAPEUTIC PRODUCTS (ALL OTHER THERAPEUTIC PRODUCTS) [Concomitant]

REACTIONS (9)
  - BLOOD PRESSURE DECREASED [None]
  - BLOOD PRESSURE INCREASED [None]
  - CONFUSIONAL STATE [None]
  - DIZZINESS [None]
  - DYSPNOEA [None]
  - HEART RATE DECREASED [None]
  - SENSORY DISTURBANCE [None]
  - THERAPEUTIC RESPONSE UNEXPECTED [None]
  - VISUAL DISTURBANCE [None]
